FAERS Safety Report 10687902 (Version 1)
Quarter: 2014Q4

REPORT INFORMATION
  Report Type: Spontaneous
  Country: US (occurrence: None)
  Receive Date: 20141231
  Receipt Date: 20141231
  Transmission Date: 20150529
  Serious: Yes (Hospitalization)
  Sender: FDA-Public Use
  Company Number: None

PATIENT
  Age: 12 Year
  Sex: Female
  Weight: 43 kg

DRUGS (2)
  1. NOXAFIL [Suspect]
     Active Substance: POSACONAZOLE
     Indication: FUNGAL INFECTION
     Route: 042
     Dates: start: 20141028, end: 20141106
  2. VORICONAZOLE? [Concomitant]

REACTIONS (3)
  - Jaundice [None]
  - Ascites [None]
  - Cholestasis [None]

NARRATIVE: CASE EVENT DATE: 20141030
